FAERS Safety Report 7819247-7 (Version None)
Quarter: 2011Q4

REPORT INFORMATION
  Report Type: 
  Country: None (occurrence: None)
  Receive Date: 20111018
  Receipt Date: 20101112
  Transmission Date: 20120403
  Serious: No
  Sender: FDA-Public Use
  Company Number: US-ASTRAZENECA-2010SE54303

PATIENT
  Sex: Female

DRUGS (1)
  1. SYMBICORT [Suspect]
     Indication: UPPER RESPIRATORY TRACT INFECTION
     Dosage: UNKNOWN DOSE BID
     Route: 055
     Dates: start: 20101101

REACTIONS (2)
  - DRUG INEFFECTIVE FOR UNAPPROVED INDICATION [None]
  - FEELING ABNORMAL [None]
